FAERS Safety Report 8100608-6 (Version None)
Quarter: 2012Q1

REPORT INFORMATION
  Report Type: 
  Country: None (occurrence: None)
  Receive Date: 20120131
  Receipt Date: 20110722
  Transmission Date: 20120608
  Serious: Yes (Other)
  Sender: FDA-Public Use
  Company Number: US-GENZYME-THYM-1002114

PATIENT
  Age: 63 Year
  Sex: Female

DRUGS (16)
  1. CYCLOSPORINE [Concomitant]
     Dosage: 300 MG, QD
     Route: 065
     Dates: start: 20010101, end: 20010101
  2. CYTOXAN [Concomitant]
     Indication: LARGE GRANULAR LYMPHOCYTOSIS
     Dosage: 100 MG, QD
     Route: 065
     Dates: start: 20010101, end: 20010101
  3. ALEMTUZUMAB [Concomitant]
     Dosage: 30 MG, Q2W
     Route: 065
     Dates: start: 20020101, end: 20050101
  4. ALEMTUZUMAB [Concomitant]
     Dosage: 30 MG, UNK
     Route: 058
     Dates: start: 20050101
  5. TRIMETHOPRIM + SULFAMETHOXAZOLE [Concomitant]
     Indication: ANTIFUNGAL PROPHYLAXIS
     Route: 065
  6. ANTI-THYMOCYTE GLOBULIN NOS [Suspect]
     Indication: LARGE GRANULAR LYMPHOCYTOSIS
     Dosage: 1.5 MG/KG, QD
     Route: 042
     Dates: start: 20010101, end: 20010101
  7. PENTOSTATIN [Concomitant]
     Indication: LARGE GRANULAR LYMPHOCYTOSIS
     Dosage: 4 G/M2, Q2W
     Route: 065
     Dates: start: 20020101, end: 20020101
  8. CYCLOSPORINE [Concomitant]
     Indication: LARGE GRANULAR LYMPHOCYTOSIS
     Dosage: 200 MG, QD
     Route: 065
     Dates: start: 20010101, end: 20010101
  9. 03-OKT [Concomitant]
     Indication: LARGE GRANULAR LYMPHOCYTOSIS
     Dosage: 20 MG, QD
     Route: 065
     Dates: start: 20020101, end: 20020101
  10. ALEMTUZUMAB [Concomitant]
     Indication: LARGE GRANULAR LYMPHOCYTOSIS
     Dosage: 3 MG, QD
     Route: 065
     Dates: start: 20020201, end: 20020201
  11. ALEMTUZUMAB [Concomitant]
     Dosage: 30 MG, TIW
     Route: 065
     Dates: start: 20020101, end: 20020101
  12. ALEMTUZUMAB [Concomitant]
     Dosage: 30 MG, QD
     Route: 065
     Dates: start: 20020101, end: 20020101
  13. ALEMTUZUMAB [Concomitant]
     Dosage: 30 MG, QW
     Route: 065
     Dates: start: 20020101, end: 20020101
  14. CYCLOSPORINE [Concomitant]
     Dosage: 250 MG, QD
     Route: 065
     Dates: start: 20010101, end: 20010101
  15. ALEMTUZUMAB [Concomitant]
     Dosage: 10 MG, QD
     Route: 065
     Dates: start: 20020201, end: 20020101
  16. PENTAMIDINE [Concomitant]
     Indication: ANTIFUNGAL PROPHYLAXIS
     Route: 065

REACTIONS (4)
  - NEUTROPHIL COUNT DECREASED [None]
  - THERAPEUTIC RESPONSE DECREASED [None]
  - AUTOIMMUNE THROMBOCYTOPENIA [None]
  - FEBRILE NEUTROPENIA [None]
